FAERS Safety Report 5388814-5 (Version None)
Quarter: 2007Q3

REPORT INFORMATION
  Report Type: 
  Country: None (occurrence: None)
  Receive Date: 20070712
  Receipt Date: 20070703
  Transmission Date: 20080115
  Serious: Yes (Death)
  Sender: FDA-Public Use
  Company Number: 2006SP003980

PATIENT
  Age: 47 Year
  Sex: Male

DRUGS (6)
  1. LUNESTA [Suspect]
     Dosage: ORAL
     Route: 048
     Dates: start: 20061026
  2. PIOGLITAZONE [Concomitant]
  3. HYDROCHLORIDE [Concomitant]
  4. ASPIRIN [Concomitant]
  5. AMARYL [Concomitant]
  6. CRESTOR [Concomitant]

REACTIONS (2)
  - ALCOHOL POISONING [None]
  - COMPLETED SUICIDE [None]
